FAERS Safety Report 6036281-0 (Version None)
Quarter: 2009Q1

REPORT INFORMATION
  Report Type: 
  Country: None (occurrence: None)
  Receive Date: 20090113
  Receipt Date: 20090107
  Transmission Date: 20090719
  Serious: Yes (Other)
  Sender: FDA-Public Use
  Company Number: PHEH2009US00509

PATIENT
  Sex: Male

DRUGS (7)
  1. ZOMETA [Suspect]
     Indication: PROSTATE CANCER
     Dosage: 4 MG EVERY 3 MONTHS
     Route: 042
     Dates: start: 20030301, end: 20050301
  2. PROSCAR [Concomitant]
  3. CALCIUM [Concomitant]
  4. ZOCOR [Concomitant]
  5. PRILOSEC [Concomitant]
  6. AVAPRO [Concomitant]
  7. CASODEX [Concomitant]

REACTIONS (3)
  - BONE DISORDER [None]
  - PALATAL OEDEMA [None]
  - TOOTH ABSCESS [None]
